FAERS Safety Report 23779077 (Version 1)
Quarter: 2024Q2

REPORT INFORMATION
  Report Type: Spontaneous
  Country: FR (occurrence: None)
  Receive Date: 20240424
  Receipt Date: 20240424
  Transmission Date: 20240716
  Serious: Yes (Hospitalization)
  Sender: FDA-Public Use
  Company Number: 2024A096151

PATIENT
  Age: 60 Year
  Sex: Female
  Weight: 108 kg

DRUGS (29)
  1. OMEPRAZOLE [Suspect]
     Active Substance: OMEPRAZOLE
     Indication: Ulcer
     Route: 048
     Dates: start: 20240107
  2. PAROXETINE [Suspect]
     Active Substance: PAROXETINE
     Indication: Depression
     Route: 048
     Dates: start: 20240107
  3. PAROXETINE [Suspect]
     Active Substance: PAROXETINE
     Indication: Depression
     Route: 048
     Dates: start: 20240117
  4. MIRTAZAPINE [Suspect]
     Active Substance: MIRTAZAPINE
     Indication: Depression
     Route: 048
     Dates: start: 20240107
  5. ALPRAZOLAM [Suspect]
     Active Substance: ALPRAZOLAM
     Indication: Anxiety
     Route: 048
     Dates: start: 20240107
  6. ALPRAZOLAM [Suspect]
     Active Substance: ALPRAZOLAM
     Indication: Anxiety
     Route: 048
     Dates: start: 20240116
  7. JANUMET [Suspect]
     Active Substance: METFORMIN HYDROCHLORIDE\SITAGLIPTIN PHOSPHATE
     Indication: Type 2 diabetes mellitus
     Route: 048
     Dates: start: 20240207
  8. LETROZOLE [Suspect]
     Active Substance: LETROZOLE
     Indication: Breast cancer
     Route: 048
     Dates: start: 20240107
  9. LETROZOLE [Suspect]
     Active Substance: LETROZOLE
     Indication: Breast cancer
     Route: 048
     Dates: start: 20240117
  10. CHOLECALCIFEROL [Suspect]
     Active Substance: CHOLECALCIFEROL
     Indication: Vitamin K deficiency
     Route: 048
     Dates: start: 20240107
  11. FEBUXOSTAT [Suspect]
     Active Substance: FEBUXOSTAT
     Indication: Hyperuricaemia
     Route: 048
     Dates: start: 20240107
  12. SPIRONOLACTONE [Suspect]
     Active Substance: SPIRONOLACTONE
     Indication: Hypertension
     Route: 048
     Dates: start: 20240107
  13. METOPROLOL FUMARATE [Suspect]
     Active Substance: METOPROLOL FUMARATE
     Indication: Hypertension
     Route: 048
     Dates: start: 20240107
  14. PERINDOPRIL [Suspect]
     Active Substance: PERINDOPRIL
     Indication: Hypertension
     Route: 048
     Dates: start: 20240107
  15. LEVOTHYROXINE [Suspect]
     Active Substance: LEVOTHYROXINE\LEVOTHYROXINE SODIUM
     Indication: Hypothyroidism
     Route: 048
     Dates: start: 20240107
  16. LEVOTHYROXINE [Suspect]
     Active Substance: LEVOTHYROXINE\LEVOTHYROXINE SODIUM
     Indication: Hypothyroidism
     Route: 048
     Dates: start: 20240117
  17. SOLIFENACIN [Suspect]
     Active Substance: SOLIFENACIN
     Indication: Urinary incontinence
     Route: 048
     Dates: start: 20240107
  18. LANSOPRAZOLE [Suspect]
     Active Substance: LANSOPRAZOLE
     Indication: Gastritis
     Route: 048
     Dates: start: 20240110, end: 20240118
  19. LANSOPRAZOLE [Suspect]
     Active Substance: LANSOPRAZOLE
     Indication: Gastritis
     Route: 048
     Dates: start: 20240119, end: 20240220
  20. CLODRONATE DISODIUM [Suspect]
     Active Substance: CLODRONATE DISODIUM
     Indication: Osteolysis
     Route: 048
     Dates: start: 20240107
  21. FUROSEMIDE [Suspect]
     Active Substance: FUROSEMIDE
     Indication: Oedema
     Route: 048
     Dates: start: 20240107
  22. FUROSEMIDE [Suspect]
     Active Substance: FUROSEMIDE
     Indication: Oedema
     Route: 048
     Dates: start: 20240129
  23. FUROSEMIDE [Suspect]
     Active Substance: FUROSEMIDE
     Indication: Oedema
     Route: 048
     Dates: start: 20240116, end: 20240128
  24. LERCANIDIPINE HYDROCHLORIDE [Suspect]
     Active Substance: LERCANIDIPINE HYDROCHLORIDE
     Indication: Hypertension
     Route: 048
  25. LERCANIDIPINE HYDROCHLORIDE [Suspect]
     Active Substance: LERCANIDIPINE HYDROCHLORIDE
     Indication: Hypertension
     Route: 048
     Dates: start: 20240107
  26. PANTOPRAZOLE [Suspect]
     Active Substance: PANTOPRAZOLE
     Indication: Gastritis
     Route: 042
     Dates: start: 20240119, end: 20240121
  27. CIMETIDINE [Concomitant]
     Active Substance: CIMETIDINE
     Dates: start: 20240220
  28. VILDAGLIPTIN [Concomitant]
     Active Substance: VILDAGLIPTIN
     Dosage: RESUMPTION OF VILDAGLIPTIN 50 MG50.0MG UNKNOWN
     Dates: start: 20240305
  29. VILDAGLIPTIN [Concomitant]
     Active Substance: VILDAGLIPTIN
     Dosage: UNKNOWN

REACTIONS (18)
  - Renal tubular necrosis [Not Recovered/Not Resolved]
  - Acute kidney injury [Unknown]
  - Pseudomonas infection [Unknown]
  - Staphylococcal infection [Unknown]
  - General physical health deterioration [Unknown]
  - Depressed level of consciousness [Unknown]
  - Hyperkalaemia [Unknown]
  - Lactic acidosis [Unknown]
  - Hypotension [Unknown]
  - Toxic encephalopathy [Unknown]
  - Pneumonia bacterial [Unknown]
  - Gastritis erosive [Unknown]
  - Duodenitis [Unknown]
  - Intercapillary glomerulosclerosis [Unknown]
  - Anaemia vitamin B12 deficiency [Unknown]
  - Klebsiella infection [Unknown]
  - Tubulointerstitial nephritis [Not Recovered/Not Resolved]
  - Headache [Unknown]

NARRATIVE: CASE EVENT DATE: 20240107
